FAERS Safety Report 5094452-4 (Version None)
Quarter: 2006Q3

REPORT INFORMATION
  Report Type: 
  Country: None (occurrence: None)
  Receive Date: 20060829
  Receipt Date: 20060825
  Transmission Date: 20061208
  Serious: Yes (Death)
  Sender: FDA-Public Use
  Company Number: GBWYE605505MAY06

PATIENT
  Age: 80 Year
  Sex: Male

DRUGS (14)
  1. RAPAMUNE [Suspect]
     Indication: IMMUNOSUPPRESSION
     Dosage: ORAL
     Route: 048
     Dates: start: 20050727, end: 20051128
  2. MYCOPHENOLATE MOFETIL [Concomitant]
  3. PREDNISOLONE [Concomitant]
  4. ASPIRIN [Concomitant]
  5. LANSOPRAZOLE [Concomitant]
  6. SODIUM BICARBONATE IN PLASTIC CONTAINER [Concomitant]
  7. AMLODIPINE (ATENOLOL) [Concomitant]
  8. ATENOLOL [Concomitant]
  9. FOLIC ACID [Concomitant]
  10. LATANOPROST [Concomitant]
  11. FUROSEMIDE [Concomitant]
  12. NYSTATIN [Concomitant]
  13. ALFACALCIDOL (ALFACALCIDOL) [Concomitant]
  14. IRON (IRON) [Concomitant]

REACTIONS (10)
  - BRONCHIECTASIS [None]
  - CARDIAC FAILURE [None]
  - COMPLICATIONS OF TRANSPLANTED KIDNEY [None]
  - HAEMOGLOBIN DECREASED [None]
  - PNEUMONIA PRIMARY ATYPICAL [None]
  - PNEUMONITIS [None]
  - PULMONARY FIBROSIS [None]
  - PULMONARY OEDEMA [None]
  - RESPIRATORY FAILURE [None]
  - TRANSPLANT REJECTION [None]
